FAERS Safety Report 6417520-0 (Version None)
Quarter: 2009Q4

REPORT INFORMATION
  Report Type: 
  Country: None (occurrence: None)
  Receive Date: 20091028
  Receipt Date: 20091019
  Transmission Date: 20100525
  Serious: Yes (Other)
  Sender: FDA-Public Use
  Company Number: ES-ABBOTT-09P-144-0602157-00

PATIENT
  Age: 40 Year
  Sex: Female

DRUGS (4)
  1. KALETRA [Suspect]
     Indication: ANTIVIRAL TREATMENT
     Route: 048
     Dates: start: 20090317
  2. RALTEGRAVIR [Suspect]
     Indication: ANTIVIRAL TREATMENT
     Route: 048
     Dates: start: 20081112, end: 20090317
  3. TRUVADA [Suspect]
     Indication: ANTIVIRAL TREATMENT
     Dosage: 200-245 MG PER DAY
     Route: 048
     Dates: start: 20081204, end: 20090317
  4. LAMIVUDINE + ZIDOVUDINE [Suspect]
     Indication: ANTIVIRAL TREATMENT
     Route: 048
     Dates: start: 20090317

REACTIONS (1)
  - ABORTION SPONTANEOUS [None]
